FAERS Safety Report 7650577-8 (Version None)
Quarter: 2011Q3

REPORT INFORMATION
  Report Type: 
  Country: None (occurrence: None)
  Receive Date: 20110727
  Receipt Date: 20110712
  Transmission Date: 20111222
  Serious: Yes (Life-Threatening)
  Sender: FDA-Public Use
  Company Number: 2011AP001475

PATIENT
  Age: 80 Year
  Sex: Male

DRUGS (8)
  1. PERINDOPRIL ERBUMINE [Concomitant]
  2. INDAPAMIDE [Concomitant]
  3. RABEPRAZOLE (RABEPRAZOLE) [Concomitant]
  4. FERROUS FUMARATE [Concomitant]
  5. CLARITHROMYCIN [Suspect]
     Indication: LOWER RESPIRATORY TRACT INFECTION
     Dosage: 500 MG;PO;BID
     Route: 048
     Dates: start: 20110614, end: 20110615
  6. CLOPIDOGREL BISULFATE [Concomitant]
  7. SIMVASTATIN [Concomitant]
  8. ACETAMINOPHEN [Concomitant]

REACTIONS (6)
  - HYPOXIA [None]
  - CONSCIOUSNESS FLUCTUATING [None]
  - HYPOTENSION [None]
  - INCONTINENCE [None]
  - ELECTROCARDIOGRAM QT PROLONGED [None]
  - ARRHYTHMIA [None]
